FAERS Safety Report 20730713 (Version 1)
Quarter: 2022Q2

REPORT INFORMATION
  Report Type: Spontaneous
  Country: US (occurrence: US)
  Receive Date: 20220420
  Receipt Date: 20220420
  Transmission Date: 20220720
  Serious: No
  Sender: FDA-Public Use
  Company Number: US-ASTELLAS-2021US020494

PATIENT
  Age: 60 Year
  Sex: Female

DRUGS (8)
  1. LEXISCAN [Suspect]
     Active Substance: REGADENOSON
     Indication: Product used for unknown indication
     Dosage: UNK UNK, UNKNOWN FREQ.
     Route: 065
     Dates: start: 2015, end: 2015
  2. LEXISCAN [Suspect]
     Active Substance: REGADENOSON
     Indication: Product used for unknown indication
     Dosage: UNK UNK, UNKNOWN FREQ.
     Route: 065
     Dates: start: 2015, end: 2015
  3. LEXISCAN [Suspect]
     Active Substance: REGADENOSON
     Indication: Product used for unknown indication
     Dosage: UNK UNK, UNKNOWN FREQ.
     Route: 065
     Dates: start: 2015, end: 2015
  4. LEXISCAN [Suspect]
     Active Substance: REGADENOSON
     Indication: Product used for unknown indication
     Dosage: UNK UNK, UNKNOWN FREQ.
     Route: 065
     Dates: start: 2015, end: 2015
  5. LEXISCAN [Suspect]
     Active Substance: REGADENOSON
     Dosage: 0.4 MG/5 ML (0.08 MG/ML), UNKNOWN FREQ.
     Route: 065
     Dates: start: 20210602, end: 20210602
  6. LEXISCAN [Suspect]
     Active Substance: REGADENOSON
     Dosage: 0.4 MG/5 ML (0.08 MG/ML), UNKNOWN FREQ.
     Route: 065
     Dates: start: 20210602, end: 20210602
  7. LEXISCAN [Suspect]
     Active Substance: REGADENOSON
     Dosage: 0.4 MG/5 ML (0.08 MG/ML), UNKNOWN FREQ.
     Route: 065
     Dates: start: 20210602, end: 20210602
  8. LEXISCAN [Suspect]
     Active Substance: REGADENOSON
     Dosage: 0.4 MG/5 ML (0.08 MG/ML), UNKNOWN FREQ.
     Route: 065
     Dates: start: 20210602, end: 20210602

REACTIONS (6)
  - Fatigue [Recovered/Resolved]
  - Heart rate decreased [Recovered/Resolved]
  - Blood pressure decreased [Recovered/Resolved]
  - Atrioventricular block [Recovered/Resolved]
  - Headache [Recovered/Resolved]
  - Dizziness [Recovered/Resolved]

NARRATIVE: CASE EVENT DATE: 20210602
